FAERS Safety Report 5600295-2 (Version None)
Quarter: 2007Q4

REPORT INFORMATION
  Report Type: 
  Country: None (occurrence: None)
  Receive Date: 20071226
  Receipt Date: 20061212
  Transmission Date: 20080405
  Serious: Yes (Other)
  Sender: FDA-Public Use
  Company Number: 232907

PATIENT
  Age: 60 Year
  Sex: Male

DRUGS (1)
  1. RAPTIVA [Suspect]
     Indication: PSORIASIS
     Dosage: 100 MG/ML, 1/WEEK, SUBCUTANEOUS
     Route: 058
     Dates: start: 20061001, end: 20061024

REACTIONS (1)
  - PLATELET COUNT DECREASED [None]
